FAERS Safety Report 8905844 (Version 5)
Quarter: 2014Q2

REPORT INFORMATION
  Report Type: Spontaneous
  Country: US (occurrence: US)
  Receive Date: 20121113
  Receipt Date: 20140415
  Transmission Date: 20141212
  Serious: Yes (Disabling)
  Sender: FDA-Public Use
  Company Number: US-009507513-1211USA003005

PATIENT
  Sex: Male
  Weight: 49.89 kg

DRUGS (7)
  1. PROSCAR [Suspect]
     Indication: PROSTATOMEGALY
     Dosage: 5 MG, QD
     Route: 048
     Dates: end: 2009
  2. PROPECIA [Suspect]
     Indication: ANDROGENETIC ALOPECIA
     Dosage: UNK
     Route: 048
     Dates: start: 2009
  3. PROPECIA [Suspect]
     Indication: PROSTATOMEGALY
  4. FINASTERIDE [Suspect]
     Indication: PROSTATOMEGALY
     Dosage: 5 MG, UNK
     Route: 048
     Dates: start: 20091121, end: 201003
  5. FINASTERIDE [Suspect]
     Dosage: 5 MG, UNK
     Route: 048
     Dates: start: 20111008
  6. FINASTERIDE [Suspect]
     Indication: PROSTATOMEGALY
     Dosage: 5 MG, QD
     Route: 048
     Dates: start: 20101216, end: 20110209
  7. FINASTERIDE [Suspect]
     Indication: PROSTATOMEGALY
     Dosage: 5 MG, QD
     Route: 048
     Dates: start: 20110613, end: 20120724

REACTIONS (12)
  - Anxiety [Unknown]
  - Emotional distress [Unknown]
  - Sexual dysfunction [Unknown]
  - Alopecia [Unknown]
  - Hair colour changes [Unknown]
  - Nephrolithiasis [Unknown]
  - Nephrolithiasis [Unknown]
  - Renal colic [Unknown]
  - Unevaluable event [Unknown]
  - Dizziness [Unknown]
  - Erectile dysfunction [Unknown]
  - Gynaecomastia [Unknown]
